FAERS Safety Report 9542415 (Version 1)
Quarter: 2013Q3

REPORT INFORMATION
  Report Type: Report from Study
  Country: GB (occurrence: GB)
  Receive Date: 20130923
  Receipt Date: 20130923
  Transmission Date: 20140515
  Serious: Yes (Other)
  Sender: FDA-Public Use
  Company Number: GB-PFIZER INC-2013268666

PATIENT
  Sex: 0

DRUGS (5)
  1. OXALIPLATIN [Suspect]
     Indication: COLORECTAL CANCER
     Dosage: 100 MG/M2,OVER 2 H ON DAY 1 REPEATED ONCE EVERY 2 WEEKS
     Route: 042
  2. FLUOROURACIL [Suspect]
     Dosage: 400 MG/M2 ON DAY1 REPEATED ONCE EVERY 2 WEEKS
     Route: 040
  3. FLUOROURACIL [Suspect]
     Dosage: 1,200 MG/M2/DAY FOR 2 DAYS (TOTAL 2,400-3,000 MG/M2 OVER 46-48H) REPEATED ONCE EVERY 2 WEEKS
     Route: 042
  4. LEUCOVORIN [Suspect]
     Indication: COLORECTAL CANCER
     Dosage: 400 MG/M2,OVER 2 H ON DAY 1 REPEATED ONCE EVERY 2 WEEKS
     Route: 042
  5. PAZOPANIB [Suspect]
     Indication: COLORECTAL CANCER
     Dosage: 400 MG, 1X/DAY ON DAYS 1-14

REACTIONS (1)
  - Fatigue [Unknown]
